FAERS Safety Report 21388707 (Version 4)
Quarter: 2022Q4

REPORT INFORMATION
  Report Type: Report from Study
  Country: US (occurrence: US)
  Receive Date: 20220928
  Receipt Date: 20221101
  Transmission Date: 20230112
  Serious: Yes (Other)
  Sender: FDA-Public Use
  Company Number: US-NOVARTISTESTPH-NVSC2022US218997

PATIENT
  Sex: Female

DRUGS (1)
  1. AFINITOR [Suspect]
     Active Substance: EVEROLIMUS
     Indication: Product used for unknown indication
     Dosage: 5 MG, PRN (AS NEEDED)
     Route: 048

REACTIONS (5)
  - Lung neoplasm malignant [Unknown]
  - Neoplasm [Unknown]
  - Malaise [Unknown]
  - Lower limb fracture [Recovering/Resolving]
  - Pain in extremity [Unknown]
